FAERS Safety Report 14303960 (Version 1)
Quarter: 2017Q4

REPORT INFORMATION
  Report Type: Spontaneous
  Country: IT (occurrence: IT)
  Receive Date: 20171219
  Receipt Date: 20171219
  Transmission Date: 20180321
  Serious: Yes (Hospitalization, Other)
  Sender: FDA-Public Use
  Company Number: IT-OTSUKA-DJ20095307

PATIENT

DRUGS (1)
  1. OPC-14597 [Suspect]
     Active Substance: CILOSTAZOL
     Indication: AGITATION
     Route: 030
     Dates: start: 20091110, end: 20091111

REACTIONS (2)
  - Cardiac failure [Not Recovered/Not Resolved]
  - Pulmonary oedema [Not Recovered/Not Resolved]

NARRATIVE: CASE EVENT DATE: 20091111
